FAERS Safety Report 7668959-7 (Version None)
Quarter: 2011Q3

REPORT INFORMATION
  Report Type: 
  Country: None (occurrence: None)
  Receive Date: 20110808
  Receipt Date: 20101015
  Transmission Date: 20111222
  Serious: Yes (Death)
  Sender: FDA-Public Use
  Company Number: GB-GLAXOSMITHKLINE-B0679750B

PATIENT
  Sex: Female

DRUGS (5)
  1. MALARONE [Suspect]
     Indication: MALARIA PROPHYLAXIS
     Dosage: 1TAB PER DAY
     Route: 064
     Dates: start: 20100901, end: 20100919
  2. HEPATYRIX [Suspect]
     Indication: PROPHYLAXIS
     Dosage: 1INJ SINGLE DOSE
     Route: 064
     Dates: start: 20100712, end: 20100712
  3. PREDNISOLONE [Concomitant]
     Indication: PROPHYLAXIS
     Dosage: 2TAB PER DAY
     Route: 064
     Dates: start: 20100819
  4. STEROIDS [Concomitant]
     Route: 064
     Dates: start: 20100801
  5. FOLIC ACID [Concomitant]
     Route: 064

REACTIONS (2)
  - DEATH [None]
  - MATERNAL EXPOSURE DURING PREGNANCY [None]
